FAERS Safety Report 9905380 (Version 1)
Quarter: 2014Q1

REPORT INFORMATION
  Report Type: Spontaneous
  Country: US (occurrence: None)
  Receive Date: 20140218
  Receipt Date: 20140218
  Transmission Date: 20141002
  Serious: Yes (Other)
  Sender: FDA-Public Use
  Company Number: None

PATIENT
  Age: 14 Year
  Sex: Male
  Weight: 59 kg

DRUGS (4)
  1. L-CITRULLINE [Suspect]
     Indication: AMINO ACID METABOLISM DISORDER
     Dosage: 9 CPS, DIVIDED 5 AM, 4 PM, ORAL
     Route: 048
     Dates: start: 20131218, end: 20140207
  2. BUPHENYL [Concomitant]
  3. STRATTERA [Concomitant]
  4. LAMOTRIGINE [Concomitant]

REACTIONS (2)
  - Drug level decreased [None]
  - Product quality issue [None]
